FAERS Safety Report 13735483 (Version 3)
Quarter: 2017Q3

REPORT INFORMATION
  Report Type: Spontaneous
  Country: US (occurrence: US)
  Receive Date: 20170710
  Receipt Date: 20170803
  Transmission Date: 20171127
  Serious: Yes (Hospitalization)
  Sender: FDA-Public Use
  Company Number: US-PFIZER INC-2017296356

PATIENT
  Age: 81 Year
  Sex: Female

DRUGS (2)
  1. LETROZOLE. [Suspect]
     Active Substance: LETROZOLE
     Indication: BREAST CANCER METASTATIC
     Dosage: UNK
  2. IBRANCE [Suspect]
     Active Substance: PALBOCICLIB
     Indication: BREAST CANCER METASTATIC
     Dosage: 125 MG, UNK

REACTIONS (9)
  - Stomatitis [Not Recovered/Not Resolved]
  - Pruritus [Recovered/Resolved]
  - Dry mouth [Recovered/Resolved]
  - Rosacea [Not Recovered/Not Resolved]
  - Oral pain [Recovered/Resolved]
  - Condition aggravated [Not Recovered/Not Resolved]
  - Chapped lips [Recovered/Resolved]
  - Lip dry [Recovered/Resolved]
  - Oral discomfort [Recovered/Resolved]

NARRATIVE: CASE EVENT DATE: 20170715
